FAERS Safety Report 5752796-4 (Version None)
Quarter: 2008Q2

REPORT INFORMATION
  Report Type: 
  Country: None (occurrence: None)
  Receive Date: 20080529
  Receipt Date: 20080522
  Transmission Date: 20081010
  Serious: Yes (Other)
  Sender: FDA-Public Use
  Company Number: US-PFIZER INC-2008041905

PATIENT
  Sex: Female
  Weight: 78 kg

DRUGS (13)
  1. SU-011,248 [Suspect]
     Indication: BREAST CANCER
     Route: 048
     Dates: start: 20080313, end: 20080327
  2. SU-011,248 [Suspect]
     Route: 048
     Dates: start: 20080417, end: 20080505
  3. PACLITAXEL [Suspect]
     Indication: BREAST CANCER
     Route: 042
     Dates: start: 20080417, end: 20080430
  4. EFFEXOR [Concomitant]
     Route: 048
  5. AMBIEN [Concomitant]
     Route: 048
     Dates: start: 20030701
  6. TRAMADOL HCL [Concomitant]
     Route: 048
     Dates: start: 20080201
  7. COMPAZINE [Concomitant]
     Route: 054
     Dates: start: 20080313
  8. LORAZEPAM [Concomitant]
     Route: 048
     Dates: start: 20030701
  9. IBUPROFEN [Concomitant]
     Route: 048
     Dates: start: 20030101
  10. FENTANYL-100 [Concomitant]
     Route: 061
     Dates: start: 20080301
  11. DECADRON [Concomitant]
     Route: 048
     Dates: start: 20080312
  12. FLEXERIL [Concomitant]
     Route: 048
     Dates: start: 20070701
  13. ZOMETA [Concomitant]
     Route: 042
     Dates: start: 20080214

REACTIONS (1)
  - CHOLECYSTITIS [None]
